FAERS Safety Report 15372557 (Version 2)
Quarter: 2019Q1

REPORT INFORMATION
  Report Type: Spontaneous
  Country: US (occurrence: US)
  Receive Date: 20180911
  Receipt Date: 20190104
  Transmission Date: 20190417
  Serious: Yes (Hospitalization, Other)
  Sender: FDA-Public Use
  Company Number: US-PRINSTON PHARMACEUTICAL INC.-2018PRN01183

PATIENT
  Age: 57 Year
  Sex: Female
  Weight: 70.3 kg

DRUGS (2)
  1. UNSPECIFIED HYPERTHYROID MEDICATION [Concomitant]
  2. VALSARTAN. [Suspect]
     Active Substance: VALSARTAN
     Indication: HYPERTENSION
     Dosage: 160 MG, 1X/DAY
     Route: 048
     Dates: start: 201304, end: 20180730

REACTIONS (3)
  - Hypoaesthesia [Recovered/Resolved]
  - Breast cancer female [Recovered/Resolved]
  - Paraesthesia [Not Recovered/Not Resolved]

NARRATIVE: CASE EVENT DATE: 201711
